FAERS Safety Report 7035835-2 (Version None)
Quarter: 2010Q4

REPORT INFORMATION
  Report Type: 
  Country: None (occurrence: None)
  Receive Date: 20101008
  Receipt Date: 20101001
  Transmission Date: 20110411
  Serious: Yes (Other)
  Sender: FDA-Public Use
  Company Number: BR-PFIZER INC-2010125294

PATIENT
  Age: 64 Year
  Sex: Male
  Weight: 71 kg

DRUGS (5)
  1. CHAMPIX [Suspect]
     Indication: TOBACCO ABUSE
     Dosage: UNK
     Route: 048
     Dates: start: 20100923
  2. ACETYLCYSTEINE [Concomitant]
     Indication: CHRONIC OBSTRUCTIVE PULMONARY DISEASE
     Dosage: UNK
  3. ACETYLCYSTEINE [Concomitant]
     Indication: EMPHYSEMA
  4. AMOXICILLIN AND CLAVULANATE POTASSIUM [Concomitant]
     Indication: CHRONIC OBSTRUCTIVE PULMONARY DISEASE
     Dosage: UNK
  5. AMOXICILLIN AND CLAVULANATE POTASSIUM [Concomitant]
     Indication: EMPHYSEMA

REACTIONS (2)
  - EMOTIONAL DISTRESS [None]
  - IRRITABILITY [None]
